FAERS Safety Report 5209768-8 (Version None)
Quarter: 2006Q4

REPORT INFORMATION
  Report Type: 
  Country: None (occurrence: None)
  Receive Date: 20061129
  Receipt Date: 20040414
  Transmission Date: 20070319
  Serious: No
  Sender: FDA-Public Use
  Company Number: 2004UW07523

PATIENT
  Age: 20 Year
  Sex: Female
  Weight: 77.1115 kg

DRUGS (1)
  1. ZESTRIL [Suspect]

REACTIONS (1)
  - PANCREATITIS ACUTE [None]
